FAERS Safety Report 12635560 (Version 3)
Quarter: 2016Q3

REPORT INFORMATION
  Report Type: Spontaneous
  Country: US (occurrence: US)
  Receive Date: 20160808
  Receipt Date: 20160916
  Transmission Date: 20161109
  Serious: Yes (Hospitalization, Other)
  Sender: FDA-Public Use
  Company Number: US-009507513-1608USA003050

PATIENT
  Age: 73 Year
  Sex: Female

DRUGS (5)
  1. STROMECTOL [Suspect]
     Active Substance: IVERMECTIN
     Indication: STRONGYLOIDIASIS
     Dosage: 40 MICROGRAM PER KILOGRAM, QD
     Route: 048
  2. STROMECTOL [Suspect]
     Active Substance: IVERMECTIN
     Dosage: 200 MICROGRAM PER KILOGRAM, QD
     Route: 048
  3. DEXAMETHASONE. [Suspect]
     Active Substance: DEXAMETHASONE
     Indication: PROCEDURAL NAUSEA
     Route: 042
  4. STROMECTOL [Suspect]
     Active Substance: IVERMECTIN
     Dosage: 200 MICROGRAM PER KILOGRAM, QD
     Route: 048
  5. METFORMIN [Concomitant]
     Active Substance: METFORMIN HYDROCHLORIDE
     Indication: TYPE 2 DIABETES MELLITUS
     Route: 048

REACTIONS (4)
  - Strongyloidiasis [Recovered/Resolved]
  - Product use issue [Unknown]
  - Treatment failure [Unknown]
  - Incorrect dose administered [Unknown]
